FAERS Safety Report 13796036 (Version 1)
Quarter: 2017Q3

REPORT INFORMATION
  Report Type: Spontaneous
  Country: IN (occurrence: IN)
  Receive Date: 20170726
  Receipt Date: 20170726
  Transmission Date: 20171127
  Serious: Yes (Hospitalization, Other)
  Sender: FDA-Public Use
  Company Number: IN-PFIZER INC-2017314364

PATIENT
  Age: 26 Year
  Sex: Female

DRUGS (4)
  1. METHYLPREDNISOLONE SODIUM SUCCINATE. [Suspect]
     Active Substance: METHYLPREDNISOLONE SODIUM SUCCINATE
     Indication: LUPUS NEPHRITIS
     Dosage: 1 G, 1X/DAY
     Route: 042
  2. LEUPROLIDE /00726901/ [Concomitant]
     Active Substance: LEUPROLIDE
     Indication: PROPHYLAXIS
     Dosage: UNK
  3. MESNA. [Concomitant]
     Active Substance: MESNA
     Indication: PROPHYLAXIS
     Dosage: UNK
  4. CYCLOPHOSPHAMIDE. [Suspect]
     Active Substance: CYCLOPHOSPHAMIDE
     Indication: LUPUS NEPHRITIS
     Dosage: 7 MG/KG, MONTHLY AT EACH FOLLOW-UP VISIT, FOR THE NEXT 4 MONTHS, REGULARLY ADMINISTERED
     Route: 042

REACTIONS (2)
  - Pulmonary tuberculosis [Unknown]
  - Immunosuppression [Unknown]
